FAERS Safety Report 21453765 (Version 1)
Quarter: 2022Q4

REPORT INFORMATION
  Report Type: Spontaneous
  Country: US (occurrence: None)
  Receive Date: 20221007
  Receipt Date: 20221007
  Transmission Date: 20230113
  Serious: No
  Sender: FDA-Public Use
  Company Number: None

PATIENT
  Sex: Male

DRUGS (1)
  1. NEOSTIGMINE [Suspect]
     Active Substance: NEOSTIGMINE

REACTIONS (6)
  - Bradycardia [None]
  - Cardiac arrest [None]
  - Product administration error [None]
  - Wrong technique in product usage process [None]
  - Product prescribing error [None]
  - Near death experience [None]
